FAERS Safety Report 6666759-8 (Version None)
Quarter: 2010Q2

REPORT INFORMATION
  Report Type: 
  Country: None (occurrence: None)
  Receive Date: 20100402
  Receipt Date: 20100402
  Transmission Date: 20101027
  Serious: No
  Sender: FDA-Public Use
  Company Number: None

PATIENT
  Age: 87 Year
  Sex: Female

DRUGS (1)
  1. NIACIN [Suspect]
     Indication: BLOOD CHOLESTEROL INCREASED
     Dosage: 500MG DAILY PO
     Route: 048
     Dates: start: 20100310, end: 20100317

REACTIONS (5)
  - DRUG DISPENSING ERROR [None]
  - DRUG PRESCRIBING ERROR [None]
  - INCORRECT DRUG DOSAGE FORM ADMINISTERED [None]
  - MEDICATION ERROR [None]
  - PRURITUS [None]
